FAERS Safety Report 24215933 (Version 1)
Quarter: 2024Q3

REPORT INFORMATION
  Report Type: Spontaneous
  Country: US (occurrence: None)
  Receive Date: 20240816
  Receipt Date: 20240816
  Transmission Date: 20241016
  Serious: No
  Sender: OREXO
  Company Number: US-ARIS GLOBAL-ORE202401-000002

PATIENT
  Sex: Female

DRUGS (2)
  1. BUPRENORPHINE\NALOXONE [Suspect]
     Active Substance: BUPRENORPHINE\NALOXONE
     Indication: Cellulitis
     Dosage: UNKNOWN
  2. BUPRENORPHINE\NALOXONE [Suspect]
     Active Substance: BUPRENORPHINE\NALOXONE
     Indication: Pain

REACTIONS (3)
  - Brain fog [Unknown]
  - Malaise [Unknown]
  - Off label use [Unknown]
